FAERS Safety Report 21842024 (Version 1)
Quarter: 2023Q1

REPORT INFORMATION
  Report Type: Spontaneous
  Country: GB (occurrence: GB)
  Receive Date: 20230110
  Receipt Date: 20230110
  Transmission Date: 20230417
  Serious: Yes (Other)
  Sender: FDA-Public Use
  Company Number: GB-MYLANLABS-2022M1141006

PATIENT
  Age: 29 Year
  Sex: Female

DRUGS (4)
  1. ALBUTEROL [Suspect]
     Active Substance: ALBUTEROL
     Indication: Heart block congenital
     Dosage: 5 MILLIGRAM, TID; THREE TIMES DAILY. LATER, THE DOSE WAS INCREASED TO 8MG THREE TIMES DAILY
     Route: 065
  2. ALBUTEROL [Suspect]
     Active Substance: ALBUTEROL
     Indication: Atrioventricular block complete
     Dosage: 8 MILLIGRAM, TID; THREE TIMES DAILY
     Route: 065
  3. HYDROXYCHLOROQUINE [Suspect]
     Active Substance: HYDROXYCHLOROQUINE
     Indication: Product used for unknown indication
     Dosage: UNK
     Route: 065
  4. ASPIRIN [Suspect]
     Active Substance: ASPIRIN
     Indication: Product used for unknown indication
     Dosage: UNK
     Route: 065

REACTIONS (5)
  - Sinus tachycardia [Unknown]
  - Maternal exposure during pregnancy [Recovered/Resolved]
  - Tremor [Unknown]
  - Dizziness [Unknown]
  - Off label use [Unknown]
